FAERS Safety Report 6804494-3 (Version None)
Quarter: 2010Q2

REPORT INFORMATION
  Report Type: 
  Country: None (occurrence: None)
  Receive Date: 20100628
  Receipt Date: 20070328
  Transmission Date: 20101027
  Serious: No
  Sender: FDA-Public Use
  Company Number: US-PFIZER INC-2007025201

PATIENT
  Sex: Female

DRUGS (3)
  1. GEODON [Suspect]
     Indication: BIPOLAR DISORDER
  2. LITHIUM [Concomitant]
  3. TRAZODONE HYDROCHLORIDE [Concomitant]

REACTIONS (1)
  - DYSKINESIA [None]
